FAERS Safety Report 22041533 (Version 1)
Quarter: 2023Q1

REPORT INFORMATION
  Report Type: Spontaneous
  Country: US (occurrence: None)
  Receive Date: 20230225
  Receipt Date: 20230225
  Transmission Date: 20230418
  Serious: No
  Sender: FDA-Public Use
  Company Number: None

PATIENT
  Sex: Female
  Weight: 53.52 kg

DRUGS (9)
  1. CAPECITABINE [Suspect]
     Active Substance: CAPECITABINE
     Indication: Lung neoplasm malignant
     Dosage: FREQUENCY : TWICE A DAY;?
     Route: 048
     Dates: start: 202209
  2. ALPRAZOLAM [Concomitant]
     Active Substance: ALPRAZOLAM
  3. DOCUSATE [Concomitant]
     Active Substance: DOCUSATE
  4. ELIQUIS [Concomitant]
     Active Substance: APIXABAN
  5. GUAIFENESIN [Concomitant]
     Active Substance: GUAIFENESIN
  6. METOPROLOL [Concomitant]
     Active Substance: METOPROLOL
  7. OXYCODONE [Concomitant]
     Active Substance: OXYCODONE
  8. TRELEGY ELLIPTA [Concomitant]
     Active Substance: FLUTICASONE FUROATE\UMECLIDINIUM BROMIDE\VILANTEROL TRIFENATATE
  9. ZOFRAN [Concomitant]
     Active Substance: ONDANSETRON HYDROCHLORIDE

REACTIONS (2)
  - Therapy interrupted [None]
  - Full blood count decreased [None]
